FAERS Safety Report 7715135-5 (Version None)
Quarter: 2011Q3

REPORT INFORMATION
  Report Type: 
  Country: None (occurrence: None)
  Receive Date: 20110829
  Receipt Date: 20110818
  Transmission Date: 20111222
  Serious: Yes (Hospitalization)
  Sender: FDA-Public Use
  Company Number: PHHO2011KR14003

PATIENT
  Sex: Male
  Weight: 65 kg

DRUGS (5)
  1. EVEROLIMUS [Suspect]
     Indication: RENAL TRANSPLANT
     Dosage: 2 MG MORNING / 2.25 MG EVENING
     Route: 048
  2. METHYLPREDNISOLON ^JENAPHARM^ [Concomitant]
  3. SEPTRA [Concomitant]
  4. CYCLOSPORINE [Suspect]
     Indication: RENAL TRANSPLANT
     Dosage: 225 MG, BID
     Route: 048
     Dates: start: 20110718
  5. ZOLPIDEM [Concomitant]

REACTIONS (1)
  - WOUND DEHISCENCE [None]
